FAERS Safety Report 8734965 (Version 2)
Quarter: 2012Q4

REPORT INFORMATION
  Report Type: 
  Country: DE (occurrence: DE)
  Receive Date: 20120821
  Receipt Date: 20120831
  Transmission Date: 20130627
  Serious: Yes (Death, Other)
  Sender: FDA-Public Use
  Company Number: DE-ABBOTT-12P-062-0970457-00

PATIENT
  Age: 46 Year
  Sex: Male

DRUGS (1)
  1. HUMIRA 40 MG/0.8 ML PEN [Suspect]
     Indication: PSORIASIS
     Route: 058
     Dates: start: 20100819

REACTIONS (4)
  - Acute myocardial infarction [Fatal]
  - Coronary artery stenosis [Fatal]
  - Pulmonary oedema [Not Recovered/Not Resolved]
  - Atrial fibrillation [Not Recovered/Not Resolved]
